FAERS Safety Report 14439856 (Version 2)
Quarter: 2018Q1

REPORT INFORMATION
  Report Type: Report from Study
  Country: US (occurrence: US)
  Receive Date: 20180125
  Receipt Date: 20180217
  Transmission Date: 20180509
  Serious: No
  Sender: FDA-Public Use
  Company Number: PHEH2018US003103

PATIENT
  Sex: Female
  Weight: 79.37 kg

DRUGS (2)
  1. COSENTYX [Suspect]
     Active Substance: SECUKINUMAB
     Indication: PSORIASIS
     Dosage: 150 MG/ML, UNK (PEN 2 PK)
     Route: 065
  2. COSENTYX [Suspect]
     Active Substance: SECUKINUMAB
     Indication: PSORIATIC ARTHROPATHY
     Dosage: 300 MG, QMO
     Route: 058

REACTIONS (6)
  - Arthralgia [Unknown]
  - Lymphadenopathy [Unknown]
  - Arthritis [Unknown]
  - Joint swelling [Unknown]
  - Muscular weakness [Unknown]
  - Drug ineffective [Unknown]
